FAERS Safety Report 10764113 (Version 1)
Quarter: 2015Q1

REPORT INFORMATION
  Report Type: Spontaneous
  Country: US (occurrence: US)
  Receive Date: 20150204
  Receipt Date: 20150204
  Transmission Date: 20150721
  Serious: Yes (Other)
  Sender: FDA-Public Use
  Company Number: US-EMD SERONO-7062732

PATIENT
  Sex: Female
  Weight: 48 kg

DRUGS (3)
  1. REBIF [Suspect]
     Active Substance: INTERFERON BETA-1A
     Route: 058
  2. REBIF [Suspect]
     Active Substance: INTERFERON BETA-1A
     Indication: MULTIPLE SCLEROSIS
     Route: 058
     Dates: start: 200402
  3. REBIF [Suspect]
     Active Substance: INTERFERON BETA-1A
     Route: 058
     Dates: end: 201212

REACTIONS (7)
  - Injection site bruising [Unknown]
  - Inappropriate schedule of drug administration [Unknown]
  - Nephrolithiasis [Not Recovered/Not Resolved]
  - Injection site irritation [Unknown]
  - Menorrhagia [Recovered/Resolved]
  - Procedural complication [Unknown]
  - Umbilical hernia [Not Recovered/Not Resolved]
